FAERS Safety Report 25454329 (Version 1)
Quarter: 2025Q2

REPORT INFORMATION
  Report Type: Report from Study
  Country: IT (occurrence: IT)
  Receive Date: 20250619
  Receipt Date: 20250619
  Transmission Date: 20250716
  Serious: Yes (Death, Life-Threatening, Hospitalization)
  Sender: AUROBINDO
  Company Number: IT-SUN PHARMACEUTICAL INDUSTRIES LTD-2025R1-510067

PATIENT
  Age: 88 Year
  Sex: Male

DRUGS (3)
  1. TRANEXAMIC ACID [Suspect]
     Active Substance: TRANEXAMIC ACID
     Indication: Product used for unknown indication
     Route: 065
     Dates: start: 20141125
  2. PHYTONADIONE [Suspect]
     Active Substance: PHYTONADIONE
     Indication: Overdose
     Route: 065
     Dates: start: 20141125
  3. PROTHROMBIN [Suspect]
     Active Substance: PROTHROMBIN
     Indication: Overdose
     Route: 065
     Dates: start: 20141126

REACTIONS (1)
  - Treatment failure [Fatal]
